FAERS Safety Report 17393820 (Version 2)
Quarter: 2020Q1

REPORT INFORMATION
  Report Type: Spontaneous
  Country: JP (occurrence: JP)
  Receive Date: 20200209
  Receipt Date: 20200219
  Transmission Date: 20200409
  Serious: Yes (Other)
  Sender: FDA-Public Use
  Company Number: JP-AMGEN-JPNNI2019215370

PATIENT
  Age: 79 Year
  Sex: Female
  Weight: 45 kg

DRUGS (1)
  1. PANITUMUMAB [Suspect]
     Active Substance: PANITUMUMAB
     Indication: COLON CANCER
     Dosage: 270 MILLIGRAM
     Route: 042
     Dates: start: 20101012

REACTIONS (3)
  - Hypomagnesaemia [Recovering/Resolving]
  - Condition aggravated [Unknown]
  - Colon cancer [Unknown]

NARRATIVE: CASE EVENT DATE: 20110822
